FAERS Safety Report 11591085 (Version 3)
Quarter: 2015Q4

REPORT INFORMATION
  Report Type: Spontaneous
  Country: IQ (occurrence: IQ)
  Receive Date: 20151003
  Receipt Date: 20151016
  Transmission Date: 20160304
  Serious: Yes (Death, Hospitalization, Other)
  Sender: FDA-Public Use
  Company Number: IQ-AMGEN-IRQSP2015102817

PATIENT
  Age: 48 Year
  Sex: Male

DRUGS (1)
  1. ENBREL [Suspect]
     Active Substance: ETANERCEPT
     Indication: PRODUCT USED FOR UNKNOWN INDICATION
     Dosage: UNK
     Route: 065
     Dates: start: 2013

REACTIONS (9)
  - Physical disability [Unknown]
  - Blood urea increased [Unknown]
  - Oesophageal infection [Unknown]
  - Weight abnormal [Unknown]
  - Oesophageal candidiasis [Not Recovered/Not Resolved]
  - Cardiac arrest [Fatal]
  - Chest pain [Unknown]
  - Candida infection [Unknown]
  - Dehydration [Unknown]

NARRATIVE: CASE EVENT DATE: 20150922
